FAERS Safety Report 7401014-X (Version None)
Quarter: 2011Q2

REPORT INFORMATION
  Report Type: 
  Country: None (occurrence: None)
  Receive Date: 20110407
  Receipt Date: 20110331
  Transmission Date: 20111010
  Serious: Yes (Other)
  Sender: FDA-Public Use
  Company Number: NL-GENZYME-FLUD-1000982

PATIENT

DRUGS (5)
  1. BUSULFAN [Suspect]
     Indication: STEM CELL TRANSPLANT
     Dosage: UNK
     Route: 065
  2. FLUDARA [Suspect]
     Indication: UNEVALUABLE EVENT
  3. CAMPATH [Suspect]
     Indication: PROPHYLAXIS AGAINST GRAFT VERSUS HOST DISEASE
     Dosage: UNK
     Route: 065
  4. FLUDARA [Suspect]
     Indication: STEM CELL TRANSPLANT
     Dosage: UNK
     Route: 065
  5. BUSULFAN [Suspect]
     Indication: UNEVALUABLE EVENT

REACTIONS (2)
  - ALVEOLAR PROTEINOSIS [None]
  - RESPIRATORY FAILURE [None]
